FAERS Safety Report 15673729 (Version 1)
Quarter: 2018Q4

REPORT INFORMATION
  Report Type: Spontaneous
  Country: US (occurrence: US)
  Receive Date: 20181129
  Receipt Date: 20181129
  Transmission Date: 20190205
  Serious: Yes (Other)
  Sender: FDA-Public Use
  Company Number: US-PFIZER INC-2018429342

PATIENT
  Age: 70 Year
  Sex: Female

DRUGS (1)
  1. ESTROGENS CONJUGATED [Suspect]
     Active Substance: ESTROGENS, CONJUGATED
     Dosage: 150 MG, UNK
     Route: 048

REACTIONS (3)
  - Thrombosis [Unknown]
  - Drug hypersensitivity [Unknown]
  - Product use issue [Unknown]
